FAERS Safety Report 8924783 (Version 1)
Quarter: 2012Q4

REPORT INFORMATION
  Report Type: 
  Country: US (occurrence: US)
  Receive Date: 20121126
  Receipt Date: 20121126
  Transmission Date: 20130627
  Serious: Yes (Other)
  Sender: FDA-Public Use
  Company Number: US-PFIZER INC-2012295031

PATIENT
  Age: 19 Year
  Sex: Male
  Weight: 83.9 kg

DRUGS (2)
  1. ZOLOFT [Suspect]
     Indication: ANXIETY
     Dosage: 200 mg daily
     Dates: start: 20111031
  2. ZOLOFT [Suspect]
     Indication: DEPRESSION

REACTIONS (1)
  - Psychotic disorder [Not Recovered/Not Resolved]
